FAERS Safety Report 19665483 (Version 9)
Quarter: 2023Q2

REPORT INFORMATION
  Report Type: Report from Study
  Country: US (occurrence: US)
  Receive Date: 20210805
  Receipt Date: 20230405
  Transmission Date: 20230721
  Serious: Yes (Other)
  Sender: FDA-Public Use
  Company Number: US-002147023-NVSC2021US173417

PATIENT
  Sex: Female

DRUGS (2)
  1. COSENTYX [Suspect]
     Active Substance: SECUKINUMAB
     Indication: Psoriatic arthropathy
     Dosage: 150 MG, QMO
     Route: 058
  2. COSENTYX [Suspect]
     Active Substance: SECUKINUMAB
     Indication: Psoriasis

REACTIONS (8)
  - Hepatic cirrhosis [Unknown]
  - Psoriatic arthropathy [Unknown]
  - COVID-19 [Recovered/Resolved]
  - Asthma [Unknown]
  - Stress [Unknown]
  - Skin plaque [Unknown]
  - Psoriasis [Unknown]
  - Therapeutic product effect incomplete [Unknown]
